FAERS Safety Report 18231827 (Version 1)
Quarter: 2020Q3

REPORT INFORMATION
  Report Type: Spontaneous
  Country: US (occurrence: US)
  Receive Date: 20200904
  Receipt Date: 20200904
  Transmission Date: 20201103
  Serious: No
  Sender: FDA-Public Use
  Company Number: US-VELOXIS PHARMACEUTICALS-2020VELUS-000435

PATIENT
  Sex: Female

DRUGS (2)
  1. ENVARSUS XR [Suspect]
     Active Substance: TACROLIMUS
     Indication: PRODUCT USED FOR UNKNOWN INDICATION
     Dosage: 5 ?1MG TABS QD
     Route: 048
     Dates: start: 201912
  2. ENVARSUS XR [Suspect]
     Active Substance: TACROLIMUS
     Dosage: 1?0.75MG TAB QD
     Route: 048
     Dates: start: 201912

REACTIONS (1)
  - Pruritus [Not Recovered/Not Resolved]
